FAERS Safety Report 6775626-0 (Version None)
Quarter: 2010Q2

REPORT INFORMATION
  Report Type: 
  Country: None (occurrence: None)
  Receive Date: 20100617
  Receipt Date: 20100504
  Transmission Date: 20101027
  Serious: Yes (Death, Hospitalization, Other)
  Sender: FDA-Public Use
  Company Number: US-BAXTER-2010BH001593

PATIENT
  Age: 74 Year
  Sex: Female

DRUGS (22)
  1. HEPARIN SODIUM [Suspect]
     Indication: HAEMODIALYSIS
     Route: 058
     Dates: start: 20080101, end: 20080102
  2. HEPARIN SODIUM [Suspect]
     Route: 058
     Dates: start: 20080116, end: 20080116
  3. HEPARIN SODIUM [Suspect]
     Route: 058
     Dates: start: 20080129, end: 20080129
  4. HEPARIN SODIUM [Suspect]
     Route: 058
     Dates: start: 20080201, end: 20080201
  5. HEPARIN SODIUM [Suspect]
     Route: 010
     Dates: start: 20080205, end: 20080206
  6. HEPARIN SODIUM [Suspect]
     Route: 010
     Dates: start: 20080208, end: 20080208
  7. HEPARIN SODIUM [Suspect]
     Route: 010
     Dates: start: 20080212, end: 20080214
  8. HEPARIN SODIUM [Suspect]
     Route: 010
     Dates: start: 20080216, end: 20080216
  9. HEPARIN SODIUM [Suspect]
     Route: 010
     Dates: start: 20080219, end: 20080219
  10. METOPROLOL [Concomitant]
     Indication: DRUG USE FOR UNKNOWN INDICATION
     Route: 065
  11. ASPIRIN [Concomitant]
     Indication: DRUG USE FOR UNKNOWN INDICATION
     Route: 048
  12. FENTANYL [Concomitant]
     Indication: DRUG USE FOR UNKNOWN INDICATION
     Route: 061
  13. ARANESP [Concomitant]
     Indication: DRUG USE FOR UNKNOWN INDICATION
     Route: 065
  14. VICODIN [Concomitant]
     Indication: DRUG USE FOR UNKNOWN INDICATION
     Route: 048
  15. PRAVASTATIN [Concomitant]
     Indication: DRUG USE FOR UNKNOWN INDICATION
     Route: 048
  16. CALCIUM CARBONATE [Concomitant]
     Indication: DRUG USE FOR UNKNOWN INDICATION
     Route: 065
  17. SODIUM CHLORIDE 0.9% IN PLASTIC CONTAINER [Concomitant]
     Indication: DRUG USE FOR UNKNOWN INDICATION
     Route: 065
  18. HUMULIN 70/30 [Concomitant]
     Indication: DIABETES MELLITUS
     Route: 058
  19. CALCIUM CARBONATE [Concomitant]
     Route: 048
  20. FERROUS SULFATE TAB [Concomitant]
     Indication: DRUG USE FOR UNKNOWN INDICATION
     Route: 048
  21. SIMVASTATIN [Concomitant]
     Indication: DRUG USE FOR UNKNOWN INDICATION
     Route: 048
  22. MIDODRINE HYDROCHLORIDE [Concomitant]
     Indication: DRUG USE FOR UNKNOWN INDICATION
     Route: 065

REACTIONS (32)
  - ADRENAL INSUFFICIENCY [None]
  - BRADYCARDIA [None]
  - BREAST PAIN [None]
  - CARDIAC ARREST [None]
  - CHEST PAIN [None]
  - COAGULOPATHY [None]
  - DYSPHAGIA [None]
  - DYSPNOEA [None]
  - ENTEROCOCCAL INFECTION [None]
  - EPISTAXIS [None]
  - GASTRIC HAEMORRHAGE [None]
  - HAEMATEMESIS [None]
  - HAEMOPTYSIS [None]
  - HEPARIN-INDUCED THROMBOCYTOPENIA [None]
  - HYPOTENSION [None]
  - LETHARGY [None]
  - MALAISE [None]
  - MASTITIS [None]
  - MULTI-ORGAN FAILURE [None]
  - NAUSEA [None]
  - OXYGEN SATURATION DECREASED [None]
  - PYREXIA [None]
  - RASH [None]
  - RESPIRATORY FAILURE [None]
  - SEPSIS [None]
  - SEPTIC SHOCK [None]
  - TACHYCARDIA [None]
  - TACHYPNOEA [None]
  - THROMBOCYTOPENIA [None]
  - ULCER [None]
  - UNRESPONSIVE TO STIMULI [None]
  - VOMITING [None]
